FAERS Safety Report 14437042 (Version 1)
Quarter: 2018Q1

REPORT INFORMATION
  Report Type: Report from Study
  Country: US (occurrence: US)
  Receive Date: 20180125
  Receipt Date: 20180125
  Transmission Date: 20180509
  Serious: Yes (Hospitalization)
  Sender: FDA-Public Use
  Company Number: US-EISAI MEDICAL RESEARCH-EC-2018-035348

PATIENT
  Age: 64 Year
  Sex: Male
  Weight: 97.5 kg

DRUGS (26)
  1. CYPROHEPTADINE HCL [Concomitant]
     Active Substance: CYPROHEPTADINE HYDROCHLORIDE
  2. VICTOZA [Concomitant]
     Active Substance: LIRAGLUTIDE
  3. EZETIMIBE. [Concomitant]
     Active Substance: EZETIMIBE
  4. LENVIMA [Suspect]
     Active Substance: LENVATINIB
     Indication: RENAL CANCER
     Route: 048
     Dates: start: 20171219, end: 20180117
  5. ASPIRIN. [Concomitant]
     Active Substance: ASPIRIN
  6. PROCHLORPERAZINE. [Concomitant]
     Active Substance: PROCHLORPERAZINE
  7. AFINITOR [Concomitant]
     Active Substance: EVEROLIMUS
  8. COLACE [Concomitant]
     Active Substance: DOCUSATE SODIUM
  9. SYNTHROID [Concomitant]
     Active Substance: LEVOTHYROXINE SODIUM
  10. HYDROCHLOROTHIAZIDE. [Concomitant]
     Active Substance: HYDROCHLOROTHIAZIDE
  11. SUCRALFATE. [Concomitant]
     Active Substance: SUCRALFATE
  12. ESCITALOPRAM OXALATE. [Concomitant]
     Active Substance: ESCITALOPRAM OXALATE
  13. OXYCODONE HYDROCHLORIDE. [Concomitant]
     Active Substance: OXYCODONE HYDROCHLORIDE
  14. LOSARTAN POTASSIUM. [Concomitant]
     Active Substance: LOSARTAN POTASSIUM
  15. SENNA [Concomitant]
     Active Substance: SENNA LEAF\SENNOSIDES\SENNOSIDES A AND B
  16. OXYCONTIN [Concomitant]
     Active Substance: OXYCODONE HYDROCHLORIDE
  17. MIRALAX [Concomitant]
     Active Substance: POLYETHYLENE GLYCOL 3350
  18. MOVANTIK [Concomitant]
     Active Substance: NALOXEGOL OXALATE
  19. NARCAN [Concomitant]
     Active Substance: NALOXONE HYDROCHLORIDE
  20. DRONABINOL. [Concomitant]
     Active Substance: DRONABINOL
  21. TRAZODONE HYDROCHLORIDE. [Concomitant]
     Active Substance: TRAZODONE HYDROCHLORIDE
  22. NIFEDIPINE. [Concomitant]
     Active Substance: NIFEDIPINE
  23. LORAZEPAM. [Concomitant]
     Active Substance: LORAZEPAM
  24. ONDANSETRON [Concomitant]
     Active Substance: ONDANSETRON
  25. DEXAMETHASONE. [Concomitant]
     Active Substance: DEXAMETHASONE
  26. LANTUS SOLOSTAR [Concomitant]
     Active Substance: INSULIN GLARGINE

REACTIONS (7)
  - Feeding disorder [Unknown]
  - Hyponatraemia [Unknown]
  - Nausea [Unknown]
  - Stomatitis [Unknown]
  - Diarrhoea [Recovered/Resolved]
  - Dehydration [Unknown]
  - Retching [Unknown]

NARRATIVE: CASE EVENT DATE: 20180109
